FAERS Safety Report 7409364-8 (Version None)
Quarter: 2011Q2

REPORT INFORMATION
  Report Type: 
  Country: None (occurrence: None)
  Receive Date: 20110412
  Receipt Date: 20110222
  Transmission Date: 20111010
  Serious: Yes (Hospitalization)
  Sender: FDA-Public Use
  Company Number: FR-BAYER-2011-019535

PATIENT
  Age: 61 Year
  Sex: Male
  Weight: 80 kg

DRUGS (8)
  1. LEXOMIL [Concomitant]
     Indication: ANXIETY
     Dosage: 6 MG, UNK
     Route: 048
     Dates: start: 20101221, end: 20101221
  2. CYSTINE [CYSTINE] [Concomitant]
     Indication: PALMAR-PLANTAR ERYTHRODYSAESTHESIA SYNDROME
     Dosage: 1 TABLET
     Route: 048
     Dates: start: 20100912
  3. GLUCOSE [Concomitant]
     Dosage: UNK
     Route: 042
     Dates: start: 20101222
  4. PARACETAMOL [Concomitant]
     Indication: BACK PAIN
     Dosage: 1 G, UNK
     Route: 048
     Dates: start: 20101222
  5. SORAFENIB (RAF KINASE INHIBITOR) [Suspect]
     Indication: METASTATIC RENAL CELL CARCINOMA
     Dosage: 800 MG, UNK
     Route: 048
     Dates: start: 20100527, end: 20101130
  6. PHOSPHORE [NH4 PHOS,DIBAS,MN+ GLYCEROPHOS,K+ PHOS DIBAS] [Concomitant]
     Indication: HYPOPHOSPHATAEMIA
     Dosage: 750 MG, UNK
     Route: 048
     Dates: start: 20100918
  7. TAHOR [Concomitant]
     Indication: HYPERTENSION
     Dosage: 10 MG, UNK
     Route: 048
     Dates: start: 20101014
  8. STILNOX [Concomitant]
     Indication: ANXIETY
     Dosage: 10 MG, UNK
     Route: 048
     Dates: start: 20101221, end: 20101221

REACTIONS (1)
  - NEPHROTIC SYNDROME [None]
